FAERS Safety Report 6269618-8 (Version None)
Quarter: 2009Q3

REPORT INFORMATION
  Report Type: 
  Country: None (occurrence: None)
  Receive Date: 20090714
  Receipt Date: 20090710
  Transmission Date: 20100115
  Serious: Yes (Other)
  Sender: FDA-Public Use
  Company Number: CERZ-1000682

PATIENT
  Age: 57 Year
  Sex: Male

DRUGS (1)
  1. CEREZYME [Suspect]
     Indication: GAUCHER'S DISEASE
     Dosage: 55 U/KG, Q3W, INTRAVENOUS
     Route: 042
     Dates: start: 19990101

REACTIONS (1)
  - MALIGNANT MELANOMA [None]
